FAERS Safety Report 5188512-7 (Version None)
Quarter: 2006Q4

REPORT INFORMATION
  Report Type: 
  Country: None (occurrence: None)
  Receive Date: 20061214
  Receipt Date: 20061204
  Transmission Date: 20070319
  Serious: Yes (Hospitalization)
  Sender: FDA-Public Use
  Company Number: 2006EN000200

PATIENT
  Age: 7 Year
  Sex: Male

DRUGS (1)
  1. ADAGEN [Suspect]
     Indication: DRUG USE FOR UNKNOWN INDICATION
     Dosage: 375 IU; BIW;

REACTIONS (1)
  - PNEUMONIA [None]
